FAERS Safety Report 7440861-5 (Version None)
Quarter: 2011Q2

REPORT INFORMATION
  Report Type: 
  Country: None (occurrence: None)
  Receive Date: 20110427
  Receipt Date: 20091130
  Transmission Date: 20111010
  Serious: Yes (Death, Hospitalization, Other)
  Sender: FDA-Public Use
  Company Number: US-BAYER-200941212NA

PATIENT
  Age: 56 Year
  Sex: Male
  Weight: 112.93 kg

DRUGS (14)
  1. COZAAR [Concomitant]
     Dosage: 50 MG, QD
     Route: 048
  2. LASIX [Concomitant]
     Dosage: 160 MG, QD
     Route: 048
  3. LIPITOR [Concomitant]
     Dosage: 20 MG, QD
     Route: 048
  4. AMIODARONE [Concomitant]
     Dosage: 300ML/3MG
     Route: 042
     Dates: start: 20040826
  5. CARTIA XT [Concomitant]
     Dosage: 120 MG, QD
     Route: 048
  6. AVANDIA [Concomitant]
     Dosage: 8 MG, QD
     Route: 048
  7. ACETYLSALICYLIC ACID SRT [Concomitant]
     Dosage: 81 MG, QD
     Route: 048
  8. ZEBETA [Concomitant]
     Dosage: 10 MG, QD
     Route: 048
  9. TRASYLOL [Suspect]
     Indication: AORTIC VALVE REPLACEMENT
     Dosage: 200 ML, UNK, LOADING DOSE
     Route: 042
     Dates: start: 20040826, end: 20040826
  10. VERSED [Concomitant]
  11. SUFENTANIL [Concomitant]
  12. TRASYLOL [Suspect]
     Indication: CORONARY ARTERY BYPASS
     Dosage: INFUSION AT 100ML/HR
     Route: 041
     Dates: start: 20040826, end: 20040826
  13. HEPARIN [Concomitant]
  14. TRIDIL [Concomitant]

REACTIONS (14)
  - MYOCARDIAL INFARCTION [None]
  - RENAL IMPAIRMENT [None]
  - ANXIETY [None]
  - ANHEDONIA [None]
  - DEATH [None]
  - MULTI-ORGAN FAILURE [None]
  - EMOTIONAL DISTRESS [None]
  - PAIN [None]
  - RENAL FAILURE [None]
  - RENAL INJURY [None]
  - STRESS [None]
  - UNEVALUABLE EVENT [None]
  - INJURY [None]
  - FEAR [None]
